FAERS Safety Report 7436243-2 (Version None)
Quarter: 2011Q2

REPORT INFORMATION
  Report Type: 
  Country: None (occurrence: None)
  Receive Date: 20110425
  Receipt Date: 20110413
  Transmission Date: 20111010
  Serious: Yes (Disabling, Other)
  Sender: FDA-Public Use
  Company Number: US-BAYER-2011-032545

PATIENT
  Age: 29 Year
  Sex: Female

DRUGS (3)
  1. SINGULAIR [Concomitant]
  2. AVELOX [Suspect]
     Indication: TONSILLITIS
     Dosage: 400 MG, QD
     Route: 048
     Dates: start: 20110412
  3. ADVAIR DISKUS 100/50 [Concomitant]

REACTIONS (12)
  - GENERALISED ERYTHEMA [None]
  - DIZZINESS [None]
  - CHILLS [None]
  - VOMITING [None]
  - FEELING OF BODY TEMPERATURE CHANGE [None]
  - LOSS OF CONSCIOUSNESS [None]
  - NAUSEA [None]
  - ANAPHYLACTIC REACTION [None]
  - DIARRHOEA [None]
  - FEELING HOT [None]
  - COORDINATION ABNORMAL [None]
  - CYANOSIS [None]
